FAERS Safety Report 8759811 (Version 1)
Quarter: 2012Q4

REPORT INFORMATION
  Report Type: Report from Study
  Country: FR (occurrence: FR)
  Receive Date: 20120829
  Receipt Date: 20120829
  Transmission Date: 20130627
  Serious: Yes (Death, Hospitalization, Other)
  Sender: FDA-Public Use
  Company Number: FR-VERTEX PHARMACEUTICAL INC.-000000000000000576

PATIENT
  Age: 51 Year
  Sex: Male
  Weight: 50 kg

DRUGS (9)
  1. VX-950 [Suspect]
     Indication: HEPATITIS C
     Dosage: 750 mg, tid
     Route: 048
     Dates: start: 20110909, end: 20111201
  2. PEGASYS [Suspect]
     Indication: HEPATITIS C
     Dosage: 135 ?g, UNK
     Route: 050
     Dates: start: 20111010, end: 20120502
  3. PEGASYS [Suspect]
     Dosage: 180 ?g, weekly
     Route: 050
     Dates: start: 20110811, end: 20111010
  4. REBETOL [Suspect]
     Indication: HEPATITIS C
     Dosage: 800 mg, bid
     Route: 048
     Dates: start: 20111117, end: 20120502
  5. REBETOL [Suspect]
     Dosage: 1000 mg, qd
     Route: 048
     Dates: start: 20110811, end: 20111117
  6. ALLOPURINOL [Concomitant]
     Indication: GOUT
     Dosage: UNK
     Dates: start: 20080613
  7. TRUVADA [Concomitant]
     Indication: HIV INFECTION
     Dosage: Dosage Form: Tablet
     Route: 048
     Dates: start: 20111103
  8. REYATAZ [Concomitant]
     Indication: HIV INFECTION
     Dosage: 400 mg, UNK
     Route: 048
     Dates: start: 20120223
  9. SPECIAFOLDINE [Concomitant]
     Indication: ANAEMIA
     Dosage: 5 mg, UNK
     Dates: start: 20111208

REACTIONS (2)
  - Cerebral haemorrhage [Fatal]
  - Thrombocytopenia [Fatal]
